FAERS Safety Report 5102424-6 (Version None)
Quarter: 2006Q3

REPORT INFORMATION
  Report Type: 
  Country: None (occurrence: None)
  Receive Date: 20060908
  Receipt Date: 20060818
  Transmission Date: 20061208
  Serious: Yes (Hospitalization, Other)
  Sender: FDA-Public Use
  Company Number: US200606003578

PATIENT
  Age: 50 Year
  Sex: Female
  Weight: 106.6 kg

DRUGS (2)
  1. ZYPREXA [Suspect]
     Indication: BIPOLAR DISORDER
     Dosage: 7.5 MG, ORAL
     Route: 048
     Dates: start: 20030210, end: 20050331
  2. PAXIL [Concomitant]

REACTIONS (6)
  - BILIARY TRACT DISORDER [None]
  - BLOOD CHOLESTEROL ABNORMAL [None]
  - BLOOD TRIGLYCERIDES INCREASED [None]
  - CHOLECYSTITIS [None]
  - DIABETES MELLITUS [None]
  - VISION BLURRED [None]
